FAERS Safety Report 21078170 (Version 1)
Quarter: 2022Q3

REPORT INFORMATION
  Report Type: Report from Study
  Country: US (occurrence: US)
  Receive Date: 20220713
  Receipt Date: 20220713
  Transmission Date: 20221027
  Serious: No
  Sender: FDA-Public Use
  Company Number: US-VANDA PHARMACEUTICALS, INC-2021TASUS005593

PATIENT
  Sex: Male
  Weight: 98.866 kg

DRUGS (2)
  1. HETLIOZ [Suspect]
     Active Substance: TASIMELTEON
     Indication: Non-24-hour sleep-wake disorder
     Dosage: 20 MILLIGRAM, QD, EVERY DAY ONE HOUR BEFORE BEDTIME A THE SAME TIME EVERY NIGHT
     Route: 048
  2. FLOMAX [Concomitant]
     Active Substance: TAMSULOSIN HYDROCHLORIDE
     Indication: Product used for unknown indication

REACTIONS (5)
  - Hypersensitivity [Unknown]
  - Dry mouth [Unknown]
  - Throat irritation [Unknown]
  - Muscle twitching [Unknown]
  - Inappropriate schedule of product administration [Unknown]
